FAERS Safety Report 6526125-2 (Version None)
Quarter: 2010Q1

REPORT INFORMATION
  Report Type: 
  Country: None (occurrence: None)
  Receive Date: 20100104
  Receipt Date: 20091228
  Transmission Date: 20100710
  Serious: Yes (Other)
  Sender: FDA-Public Use
  Company Number: US-JNJCH-2009033233

PATIENT
  Age: 71 Year
  Sex: Female

DRUGS (1)
  1. BENGAY ULTRA STRENGTH [Suspect]
     Indication: DRUG USE FOR UNKNOWN INDICATION
     Dosage: TEXT:UNKNOWN
     Route: 065

REACTIONS (3)
  - BURNING SENSATION [None]
  - PRODUCT QUALITY ISSUE [None]
  - RASH MACULAR [None]
